FAERS Safety Report 6186768-5 (Version None)
Quarter: 2009Q2

REPORT INFORMATION
  Report Type: 
  Country: None (occurrence: None)
  Receive Date: 20090512
  Receipt Date: 20090507
  Transmission Date: 20091009
  Serious: Yes (Death)
  Sender: FDA-Public Use
  Company Number: DK-ROCHE-631592

PATIENT
  Sex: Male
  Weight: 64 kg

DRUGS (4)
  1. XELODA [Suspect]
     Route: 048
     Dates: start: 20090313, end: 20090327
  2. IMODIUM [Concomitant]
     Route: 048
  3. TAXOTERE [Concomitant]
     Dosage: DOSE REPORTED AS 40 MG/ML.  ROUTE : IV NOS.
     Route: 042
  4. CARBOPLATIN [Concomitant]

REACTIONS (2)
  - DIARRHOEA [None]
  - DYSPNOEA [None]
